FAERS Safety Report 7615681-9 (Version None)
Quarter: 2011Q3

REPORT INFORMATION
  Report Type: 
  Country: None (occurrence: None)
  Receive Date: 20110711
  Receipt Date: 20110627
  Transmission Date: 20111222
  Serious: Yes (Death, Life-Threatening, Hospitalization)
  Sender: FDA-Public Use
  Company Number: TPA2011A00571

PATIENT
  Age: 77 Year
  Sex: Female

DRUGS (10)
  1. IBUPROFEN [Suspect]
  2. LABETALOL (LABETATLOL) [Concomitant]
  3. ALLOPURINOL [Suspect]
     Indication: BLOOD URIC ACID INCREASED
     Dosage: 1/2 TABLET 300 MG QD
     Dates: start: 20091123
  4. ULORIC [Suspect]
     Indication: GOUT
     Dosage: 1/2 TABLET 80 MG QD
     Dates: start: 20091228
  5. LISINOPRIL [Concomitant]
  6. ZEMPLAR [Concomitant]
  7. FUROSEMIDE [Concomitant]
  8. AMLODIPINE [Suspect]
     Dosage: 5 MG, 1 IN 1 D), ORAL
     Route: 048
     Dates: start: 20091209
  9. LIPITOR [Concomitant]
  10. ASPIRIN [Concomitant]

REACTIONS (18)
  - HYPOTENSION [None]
  - HAEMATOCRIT DECREASED [None]
  - HAEMODIALYSIS [None]
  - GENERAL PHYSICAL HEALTH DETERIORATION [None]
  - FLUID INTAKE REDUCED [None]
  - HYPOVOLAEMIA [None]
  - UNRESPONSIVE TO STIMULI [None]
  - TOXIC EPIDERMAL NECROLYSIS [None]
  - RENAL FAILURE ACUTE [None]
  - HYPOPHAGIA [None]
  - BLOOD BICARBONATE DECREASED [None]
  - BLOOD GLUCOSE INCREASED [None]
  - PAIN [None]
  - BLOOD SODIUM DECREASED [None]
  - HAEMOGLOBIN DECREASED [None]
  - DRUG HYPERSENSITIVITY [None]
  - TREATMENT NONCOMPLIANCE [None]
  - DYSPNOEA [None]
